FAERS Safety Report 7626182-6 (Version None)
Quarter: 2011Q3

REPORT INFORMATION
  Report Type: 
  Country: None (occurrence: None)
  Receive Date: 20110721
  Receipt Date: 20110708
  Transmission Date: 20111222
  Serious: Yes (Hospitalization)
  Sender: FDA-Public Use
  Company Number: PHHY2011DE63649

PATIENT
  Age: 26 Year
  Sex: Male

DRUGS (9)
  1. PERAZINE [Suspect]
  2. ZIPRASIDONE HYDROCHLORIDE [Suspect]
  3. ZYPREXA [Suspect]
     Dates: start: 20090901, end: 20100501
  4. CLOZAPINE [Suspect]
  5. SEROQUEL [Suspect]
     Dosage: 1200 MG, UP TO
  6. AMISULPRIDE [Suspect]
  7. ABILIFY [Suspect]
     Dosage: 15 MG UP TO
  8. RISPERDAL [Suspect]
     Dosage: UNK
     Dates: start: 20100501, end: 20110101
  9. SERDOLECT [Suspect]

REACTIONS (3)
  - CONDITION AGGRAVATED [None]
  - OCULOGYRIC CRISIS [None]
  - WEIGHT INCREASED [None]
